FAERS Safety Report 21117571 (Version 1)
Quarter: 2022Q3

REPORT INFORMATION
  Report Type: Spontaneous
  Country: CN (occurrence: CN)
  Receive Date: 20220722
  Receipt Date: 20220722
  Transmission Date: 20221026
  Serious: Yes (Hospitalization, Other)
  Sender: FDA-Public Use
  Company Number: None

PATIENT
  Age: 49 Year
  Sex: Female
  Weight: 53 kg

DRUGS (4)
  1. CYCLOPHOSPHAMIDE [Suspect]
     Active Substance: CYCLOPHOSPHAMIDE
     Indication: Breast cancer female
     Dosage: 900 MG, ONCE A DAY (DILUTED WITH 0.9% SODIUM CHLORIDE INJECTION 100 ML, ST; 2ND CYCLE OF CHEMOTHERAP
     Route: 041
     Dates: start: 20220704, end: 20220704
  2. DEXTROSE MONOHYDRATE [Suspect]
     Active Substance: DEXTROSE MONOHYDRATE
     Indication: Medication dilution
     Dosage: 100 ML, ONCE A DAY (DILUTED PIRARUBICIN HYDROCHLORIDE FOR INJECTION 75 MG; 2ND CYCLE OF CHEMOTHERAPY
     Route: 041
     Dates: start: 20220704, end: 20220704
  3. SODIUM CHLORIDE [Suspect]
     Active Substance: SODIUM CHLORIDE
     Indication: Medication dilution
     Dosage: 100 ML, ONCE A DAY (DILUTED WITH CYCLOPHOSPHAMIDE FOR INJECTION 900 MG, ST; 2ND CYCLE OF CHEMOTHERAP
     Route: 041
     Dates: start: 20220704, end: 20220704
  4. PIRARUBICIN HYDROCHLORIDE [Suspect]
     Active Substance: PIRARUBICIN HYDROCHLORIDE
     Indication: Breast cancer female
     Dosage: 75 MG, ONCE A DAY (DILUTED WITH 5% GLUCOSE INJECTION 100 ML, ST; 2ND CYCLE OF CHEMOTHERAPY)
     Route: 041
     Dates: start: 20220704, end: 20220704

REACTIONS (1)
  - Myelosuppression [Recovering/Resolving]

NARRATIVE: CASE EVENT DATE: 20220711
